FAERS Safety Report 7183471-X (Version None)
Quarter: 2010Q4

REPORT INFORMATION
  Report Type: 
  Country: None (occurrence: None)
  Receive Date: 20101222
  Receipt Date: 20101210
  Transmission Date: 20110411
  Serious: Yes (Hospitalization)
  Sender: FDA-Public Use
  Company Number: NL-PFIZER INC-2010171433

PATIENT
  Age: 63 Year
  Sex: Male

DRUGS (6)
  1. SUTENT [Suspect]
     Indication: LYMPHADENOPATHY MEDIASTINAL
     Dosage: 37.5 MG, 1X/DAY
  2. SUTENT [Suspect]
     Indication: RENAL CELL CARCINOMA
  3. TOLBUTAMIDE [Concomitant]
     Indication: NEPHRECTOMY
  4. AMLODIPINE [Concomitant]
     Indication: HYPERTENSION
  5. ATENOLOL [Concomitant]
  6. HALOPERIDOL [Concomitant]

REACTIONS (1)
  - PSYCHOTIC DISORDER [None]
